FAERS Safety Report 8557079-5 (Version None)
Quarter: 2012Q3

REPORT INFORMATION
  Report Type: 
  Country: None (occurrence: None)
  Receive Date: 20120801
  Receipt Date: 20120727
  Transmission Date: 20120928
  Serious: Yes (Hospitalization)
  Sender: FDA-Public Use
  Company Number: AU-ROCHE-1093452

PATIENT
  Age: 72 Year
  Sex: Male
  Weight: 83.4 kg

DRUGS (13)
  1. ARTANE [Concomitant]
     Dates: start: 20110101, end: 20120120
  2. CLOPIDOGREL BISULFATE [Concomitant]
     Dates: start: 20010101
  3. DEXAMETHASONE [Concomitant]
     Dates: start: 20120123, end: 20120125
  4. ZOCOR [Concomitant]
     Dates: start: 20010101
  5. NITROLINGUAL [Concomitant]
     Dates: start: 20010101
  6. MINIPRESS [Concomitant]
     Dates: start: 20000101
  7. ZOFRAN [Concomitant]
     Dates: start: 20111001
  8. PRAMIPEXOLE DIHYDROCHLORIDE [Concomitant]
     Dates: start: 20110101
  9. PERINDOPRIL ERBUMINE [Concomitant]
     Dates: start: 20010101
  10. VEMURAFENIB [Suspect]
     Indication: METASTATIC MALIGNANT MELANOMA
     Dosage: LAST DOSE PRIOR TO SAE 16/JAN/2012
     Route: 048
     Dates: start: 20111230, end: 20120118
  11. PANTOPRAZOLE SODIUM [Concomitant]
     Dates: start: 20000101
  12. PANADEINE (AUSTRALIA) [Concomitant]
     Dosage: 30/500 MG
     Dates: start: 20110101
  13. DEXAMETHASONE [Concomitant]
     Dates: start: 20111001, end: 20120123

REACTIONS (1)
  - COGNITIVE DISORDER [None]
